FAERS Safety Report 18573119 (Version 5)
Quarter: 2023Q4

REPORT INFORMATION
  Report Type: Spontaneous
  Country: US (occurrence: US)
  Receive Date: 20201203
  Receipt Date: 20231130
  Transmission Date: 20240109
  Serious: Yes (Other)
  Sender: FDA-Public Use
  Company Number: US-JNJFOC-20201146087

PATIENT
  Age: 41 Year
  Sex: Female

DRUGS (20)
  1. ELMIRON [Suspect]
     Active Substance: PENTOSAN POLYSULFATE SODIUM
     Indication: Cystitis interstitial
     Dosage: IN VARYING DOSES AND FREQUENCIES OF 100 MG FOUR TIMES A DAY, 100 MG THRICE A DAY, 400 MG TWICE A DAY
     Route: 048
     Dates: start: 20131111, end: 201801
  2. ELMIRON [Suspect]
     Active Substance: PENTOSAN POLYSULFATE SODIUM
     Route: 048
     Dates: start: 2017, end: 2020
  3. ELMIRON [Suspect]
     Active Substance: PENTOSAN POLYSULFATE SODIUM
     Route: 048
     Dates: start: 201802, end: 20200115
  4. ELMIRON [Suspect]
     Active Substance: PENTOSAN POLYSULFATE SODIUM
     Route: 048
  5. ELAVIL [Concomitant]
     Active Substance: AMITRIPTYLINE HYDROCHLORIDE
     Indication: Bladder spasm
     Route: 065
     Dates: start: 2013
  6. DITROPAN [Concomitant]
     Active Substance: OXYBUTYNIN CHLORIDE
     Indication: Hypertonic bladder
     Route: 065
     Dates: start: 2013, end: 2018
  7. OXYBUTYNIN [Concomitant]
     Active Substance: OXYBUTYNIN
     Indication: Hypertonic bladder
     Route: 065
     Dates: start: 2018
  8. PYRIDIUM [Concomitant]
     Active Substance: PHENAZOPYRIDINE
     Indication: Bladder pain
     Route: 065
     Dates: start: 2013, end: 2018
  9. PYRIDIUM [Concomitant]
     Active Substance: PHENAZOPYRIDINE
     Route: 065
     Dates: start: 2018
  10. PROTONIX [Concomitant]
     Active Substance: PANTOPRAZOLE SODIUM
     Indication: Gastrooesophageal reflux disease
     Dates: start: 20170212, end: 2019
  11. TENORMIN [Concomitant]
     Active Substance: ATENOLOL
     Indication: Ventricular extrasystoles
     Dates: start: 2017
  12. OPTIVAR [Concomitant]
     Active Substance: AZELASTINE HYDROCHLORIDE
     Indication: Eye allergy
     Dates: start: 2018
  13. PEPCID [Concomitant]
     Active Substance: FAMOTIDINE
     Indication: Antacid therapy
     Dates: start: 2017
  14. LEVSIN [Concomitant]
     Active Substance: HYOSCYAMINE SULFATE
     Indication: Muscle spasms
     Dates: start: 2019
  15. NIZORAL [Concomitant]
     Active Substance: KETOCONAZOLE
     Indication: Alopecia
     Dates: start: 2017, end: 2018
  16. FERRIC POLYSACCHARIDE COMPLEX [Concomitant]
     Active Substance: FERRIC POLYSACCHARIDE COMPLEX
     Indication: Anaemia
     Route: 065
     Dates: start: 2017, end: 2018
  17. FERRIC POLYSACCHARIDE COMPLEX [Concomitant]
     Active Substance: FERRIC POLYSACCHARIDE COMPLEX
     Indication: Anaemia
     Dates: start: 2016, end: 2017
  18. METFORMIN [Concomitant]
     Active Substance: METFORMIN HYDROCHLORIDE
     Indication: Polycystic ovarian syndrome
     Dates: start: 2006
  19. INTEGRA PLUS [Concomitant]
     Active Substance: ASCORBIC ACID\BIOTIN\CALCIUM PANTOTHENATE\FERROUS ASPARTO GLYCINATE\FERROUS FUMARATE\FOLIC ACID\NIAC
     Indication: Anaemia
     Route: 065
     Dates: start: 2018, end: 2019
  20. IRON PLUS [FOLIC ACID;IRON] [Concomitant]
     Indication: Anaemia
     Route: 065
     Dates: start: 2019

REACTIONS (10)
  - Age-related macular degeneration [Unknown]
  - Retinopathy [Unknown]
  - Retinal dystrophy [Unknown]
  - Major depression [Not Recovered/Not Resolved]
  - Retinal pigmentation [Unknown]
  - Anxiety [Not Recovered/Not Resolved]
  - Insomnia [Not Recovered/Not Resolved]
  - Alopecia [Unknown]
  - Off label use [Unknown]
  - Product use issue [Unknown]

NARRATIVE: CASE EVENT DATE: 20131111
